FAERS Safety Report 8552783 (Version 4)
Quarter: 2013Q3

REPORT INFORMATION
  Report Type: Report from Study
  Country: US (occurrence: US)
  Receive Date: 20120327
  Receipt Date: 20130801
  Transmission Date: 20140515
  Serious: Yes (Death, Life-Threatening, Hospitalization, Other)
  Sender: FDA-Public Use
  Company Number: PHEH2009US15286

PATIENT
  Age: 82 Year
  Sex: Male
  Weight: 64.45 kg

DRUGS (22)
  1. GLEEVEC [Suspect]
     Indication: CHRONIC MYELOID LEUKAEMIA
     Dosage: 100 MG, BID
     Route: 048
     Dates: start: 20080502
  2. GLEEVEC [Suspect]
     Dosage: 2 DF, DAILY
     Route: 048
     Dates: start: 20080822
  3. GLEEVEC [Suspect]
     Dosage: 1 DF, BID
     Route: 048
     Dates: start: 20110322
  4. GLEEVEC [Suspect]
     Dosage: 100 MG, BID
     Route: 048
  5. COUMADIN [Concomitant]
     Dosage: 2 DF, QD WITH EVENING MEAL
     Route: 048
  6. COUMADIN [Concomitant]
     Dosage: 01 MG, MONDAY TO FRIDAY
     Dates: start: 201204
  7. COUMADIN [Concomitant]
     Dosage: 1.5 MG, SATURDY AND SUNDAY
     Dates: start: 201204
  8. ZOLOFT (SERTRALINE HYDROCHLORIDE) [Concomitant]
     Indication: DEPRESSION
     Dosage: UNK UKN, UNK
     Dates: start: 20100426
  9. LIPITOR [Concomitant]
     Indication: BLOOD CHOLESTEROL
     Dosage: 1 DF, DAILY
     Route: 048
     Dates: start: 20080430
  10. LASIX [Concomitant]
     Dosage: 1 DF, BID
     Dates: start: 20091118
  11. LASIX [Concomitant]
     Dosage: 20 MG, QD
  12. COREG [Concomitant]
     Dosage: 6.25 MG, BID
     Route: 048
     Dates: start: 20101216
  13. LANOXIN [Concomitant]
     Dosage: 0.25 MG, QD
     Route: 048
     Dates: start: 20091029
  14. DIOVAN [Concomitant]
     Indication: BLOOD PRESSURE
     Dosage: 80 MG, QD
     Route: 048
     Dates: start: 20030429
  15. MULTIPLE VITAMINS [Concomitant]
     Dosage: UNK UKN, UNK
  16. VITAMIN C [Concomitant]
     Dosage: 1000 MG, UNK
     Dates: start: 20101216
  17. GLUCOPHAGE [Concomitant]
     Indication: DIABETES MELLITUS
     Dosage: 3 DF, TID,ONE TABLET IN THE AM AND TWO IN THE PM
     Route: 048
     Dates: start: 20080724
  18. GLUCOPHAGE [Concomitant]
     Dosage: 500 MG, PRN
     Dates: start: 20110404
  19. GLUCOPHAGE [Concomitant]
     Dosage: 500 MG, TID
     Dates: start: 201204
  20. CELEBREX [Concomitant]
     Dosage: 1 DF, QD
     Route: 048
  21. VITAMIN K [Concomitant]
     Dosage: 1 DF, QD
     Dates: start: 20110322
  22. TRAMADOL HCL [Concomitant]
     Indication: PAIN
     Dosage: 50 MG, PRN
     Route: 048
     Dates: start: 201205

REACTIONS (21)
  - Death [Fatal]
  - Cardiomyopathy [Not Recovered/Not Resolved]
  - Cardiomegaly [Unknown]
  - Cardiac failure congestive [Not Recovered/Not Resolved]
  - Pleural effusion [Not Recovered/Not Resolved]
  - Depression [Not Recovered/Not Resolved]
  - Insomnia [Recovering/Resolving]
  - Asthenia [Recovering/Resolving]
  - Arthralgia [Recovering/Resolving]
  - Sciatica [Not Recovered/Not Resolved]
  - Abasia [Not Recovered/Not Resolved]
  - Drug interaction [Unknown]
  - Penile oedema [Unknown]
  - Dyspnoea exertional [Unknown]
  - Swelling face [Unknown]
  - Oedema peripheral [Unknown]
  - Fatigue [Unknown]
  - Vision blurred [Unknown]
  - White blood cell count decreased [Unknown]
  - Haemoglobin decreased [Unknown]
  - Haematocrit decreased [Unknown]
